FAERS Safety Report 12108742 (Version 2)
Quarter: 2016Q1

REPORT INFORMATION
  Report Type: Spontaneous
  Country: US (occurrence: US)
  Receive Date: 20160224
  Receipt Date: 20160224
  Transmission Date: 20160526
  Serious: No
  Sender: FDA-Public Use
  Company Number: US-TEVA-631008ACC

PATIENT
  Age: 50 Year
  Sex: Female
  Weight: 158.9 kg

DRUGS (1)
  1. PARAGARD T 380A [Suspect]
     Active Substance: COPPER
     Indication: CONTRACEPTION
     Route: 065

REACTIONS (3)
  - Device breakage [Not Recovered/Not Resolved]
  - Device use issue [Unknown]
  - Embedded device [Not Recovered/Not Resolved]
